FAERS Safety Report 9421120 (Version 1)
Quarter: 2013Q3

REPORT INFORMATION
  Report Type: Spontaneous
  Country: US (occurrence: US)
  Receive Date: 20130725
  Receipt Date: 20130725
  Transmission Date: 20140515
  Serious: Yes (Other)
  Sender: FDA-Public Use
  Company Number: PHHY2013US076618

PATIENT
  Age: 59 Year
  Sex: Male

DRUGS (7)
  1. ATORVASTATIN [Suspect]
     Indication: ACUTE MYOCARDIAL INFARCTION
     Dosage: 20 MG, DAILY
  2. OMEPRAZOLE [Interacting]
     Indication: ACUTE MYOCARDIAL INFARCTION
     Dosage: 20 MG, DAILY
  3. GEMFIBROZIL [Interacting]
     Indication: ACUTE MYOCARDIAL INFARCTION
     Dosage: 600 MG, BID
  4. AMLODIPINE [Concomitant]
  5. ASPIRIN [Concomitant]
  6. NITRATES [Concomitant]
  7. METOPROLOL [Concomitant]

REACTIONS (5)
  - Polymyositis [Recovered/Resolved]
  - Muscular weakness [Recovered/Resolved]
  - Myalgia [Recovered/Resolved]
  - Gait disturbance [Recovered/Resolved]
  - Drug interaction [Unknown]
